FAERS Safety Report 26079500 (Version 1)
Quarter: 2025Q4

REPORT INFORMATION
  Report Type: Spontaneous
  Country: US (occurrence: US)
  Receive Date: 20251123
  Receipt Date: 20251123
  Transmission Date: 20260119
  Serious: No
  Sender: GALPHARM INTERNATIONAL
  Company Number: US-PERRIGO-25US012561

PATIENT
  Sex: Female

DRUGS (3)
  1. OPILL [Suspect]
     Active Substance: NORGESTREL
     Indication: Product used for unknown indication
     Dosage: 0.075 MG, QD
     Route: 048
     Dates: start: 2025
  2. OPILL [Suspect]
     Active Substance: NORGESTREL
     Dosage: 2 TABLETS, ONCE
     Route: 048
     Dates: start: 20251021, end: 20251021
  3. OPILL [Suspect]
     Active Substance: NORGESTREL
     Dosage: 2 TABLETS, ONCE
     Route: 048
     Dates: start: 20251020, end: 20251020

REACTIONS (3)
  - Menstrual disorder [Unknown]
  - Incorrect dose administered [Recovered/Resolved]
  - Product dose omission issue [Recovered/Resolved]

NARRATIVE: CASE EVENT DATE: 20250101
